FAERS Safety Report 5133056-1 (Version None)
Quarter: 2006Q4

REPORT INFORMATION
  Report Type: 
  Country: None (occurrence: None)
  Receive Date: 20061018
  Receipt Date: 20061006
  Transmission Date: 20070319
  Serious: Yes (Hospitalization, Other)
  Sender: FDA-Public Use
  Company Number: GBWYE156902JUN03

PATIENT
  Age: 66 Year
  Sex: Male

DRUGS (14)
  1. RAPAMUNE [Suspect]
     Indication: IMMUNOSUPPRESSANT DRUG THERAPY
     Dosage: 4 MG 1X PER 1 DAY ORAL
     Route: 048
     Dates: start: 20030512, end: 20030526
  2. SALBUTAMOL (SALBUTAMOL) [Concomitant]
  3. OMEPRAZOLE [Concomitant]
  4. TRIFYBA (FIBRE, DIETARY) [Concomitant]
  5. OLSALAZINE (OLSALAZINE) [Concomitant]
  6. INSULATARD NPH HUMAN [Concomitant]
  7. HUMAN ACTRAPID (INSULIN HUMAN) [Concomitant]
  8. PERINDOPRIL ERBUMINE [Concomitant]
  9. FUROSEMIDE [Concomitant]
  10. AMLODIPINE [Concomitant]
  11. DOXAZOSIN (DOXAZOSIN) [Concomitant]
  12. OXYTETRACYCLINE [Concomitant]
  13. PANOXYL AQ (BENZOYL PEROXIDE) [Concomitant]
  14. SIMVASTATIN [Concomitant]

REACTIONS (7)
  - ACNE [None]
  - CONDITION AGGRAVATED [None]
  - CONJUNCTIVITIS [None]
  - COUGH [None]
  - DRUG HYPERSENSITIVITY [None]
  - PYREXIA [None]
  - RALES [None]
